FAERS Safety Report 13290034 (Version 1)
Quarter: 2017Q1

REPORT INFORMATION
  Report Type: Spontaneous
  Country: JP (occurrence: JP)
  Receive Date: 20170302
  Receipt Date: 20170302
  Transmission Date: 20170428
  Serious: Yes (Life-Threatening)
  Sender: FDA-Public Use
  Company Number: JP-JNJFOC-20170300855

PATIENT
  Age: 65 Year
  Sex: Female
  Weight: 68 kg

DRUGS (3)
  1. CANAGLU [Suspect]
     Active Substance: CANAGLIFLOZIN
     Indication: TYPE 2 DIABETES MELLITUS
     Route: 048
     Dates: start: 20160719, end: 20160827
  2. ATORVASTATIN [Concomitant]
     Active Substance: ATORVASTATIN
     Dosage: STARTED BEFORE THE ADMINISTRATION OF CANAGLIFLZOIN
     Route: 048
  3. EQUA [Concomitant]
     Active Substance: VILDAGLIPTIN
     Indication: TYPE 2 DIABETES MELLITUS
     Route: 048

REACTIONS (3)
  - Diabetic ketoacidosis [Recovered/Resolved]
  - Pyelonephritis acute [Recovered/Resolved]
  - Bacteraemia [Recovered/Resolved]

NARRATIVE: CASE EVENT DATE: 20160827
